FAERS Safety Report 9678293 (Version 3)
Quarter: 2013Q4

REPORT INFORMATION
  Report Type: Report from Study
  Country: US (occurrence: US)
  Receive Date: 20131108
  Receipt Date: 20131120
  Transmission Date: 20140711
  Serious: Yes (Hospitalization)
  Sender: FDA-Public Use
  Company Number: US-ACTELION-A-US2013-90387

PATIENT
  Age: 39 Year
  Sex: Female

DRUGS (3)
  1. TRACLEER [Suspect]
     Indication: PULMONARY ARTERIAL HYPERTENSION
     Dosage: UNK
     Route: 048
  2. ADCIRCA [Concomitant]
  3. FLOLAN [Concomitant]

REACTIONS (4)
  - Catheter site infection [Unknown]
  - Catheter site pain [Unknown]
  - Catheter site erythema [Unknown]
  - Catheter site discharge [Unknown]
